FAERS Safety Report 8025908-X (Version None)
Quarter: 2012Q1

REPORT INFORMATION
  Report Type: 
  Country: None (occurrence: None)
  Receive Date: 20120105
  Receipt Date: 20110421
  Transmission Date: 20120608
  Serious: No
  Sender: FDA-Public Use
  Company Number: US-ABBOTT-11P-163-0721750-00

PATIENT
  Age: 38 Year
  Sex: Female
  Weight: 69.008 kg

DRUGS (1)
  1. SYNTHROID [Suspect]
     Indication: HYPOTHYROIDISM
     Dosage: IN MORNING
     Route: 048
     Dates: start: 20110405

REACTIONS (1)
  - COUGH [None]
